FAERS Safety Report 6531724-8 (Version None)
Quarter: 2010Q1

REPORT INFORMATION
  Report Type: 
  Country: None (occurrence: None)
  Receive Date: 20100108
  Receipt Date: 20100107
  Transmission Date: 20100710
  Serious: Yes (Other)
  Sender: FDA-Public Use
  Company Number: A0838235A

PATIENT
  Age: 38 Year
  Sex: Female

DRUGS (10)
  1. ALLI [Suspect]
     Indication: WEIGHT LOSS DIET
     Route: 048
     Dates: start: 20091224, end: 20091224
  2. LITHIUM CARBONATE [Concomitant]
  3. NEURONTIN [Concomitant]
  4. SYNTHROID [Concomitant]
  5. CYTOMEL [Concomitant]
  6. ACIPHEX [Concomitant]
  7. ASACOL [Concomitant]
  8. CLONAZEPAM [Concomitant]
  9. AMBIEN [Concomitant]
  10. IRON SUPPLEMENT [Concomitant]

REACTIONS (4)
  - AGGRESSION [None]
  - DIARRHOEA [None]
  - FLATULENCE [None]
  - PARAESTHESIA [None]
